FAERS Safety Report 8130329-5 (Version None)
Quarter: 2012Q1

REPORT INFORMATION
  Report Type: 
  Country: None (occurrence: None)
  Receive Date: 20120210
  Receipt Date: 20120206
  Transmission Date: 20120608
  Serious: Yes (Death)
  Sender: FDA-Public Use
  Company Number: PHHY2011CA78833

PATIENT
  Sex: Male

DRUGS (2)
  1. SANDOSTATIN LAR [Suspect]
     Indication: CARCINOID SYNDROME
     Dosage: 40 MG, EVERY 3 WEEKS
     Route: 030
     Dates: start: 20100104, end: 20120103
  2. AFINITOR [Suspect]
     Indication: CARCINOID SYNDROME
     Dosage: 10 MG, DAILY
     Route: 048

REACTIONS (6)
  - DEATH [None]
  - OEDEMA PERIPHERAL [None]
  - CONSTIPATION [None]
  - WEIGHT DECREASED [None]
  - CACHEXIA [None]
  - BLOOD PRESSURE SYSTOLIC INCREASED [None]
